FAERS Safety Report 17241406 (Version 1)
Quarter: 2020Q1

REPORT INFORMATION
  Report Type: Spontaneous
  Country: CN (occurrence: CN)
  Receive Date: 20200107
  Receipt Date: 20200107
  Transmission Date: 20200409
  Serious: Yes (Hospitalization, Other)
  Sender: FDA-Public Use
  Company Number: CN-NOVAST LABORATORIES LTD.-2019NOV000319

PATIENT
  Age: 14 Year
  Sex: Female

DRUGS (1)
  1. METFORMIN [Suspect]
     Active Substance: METFORMIN HYDROCHLORIDE
     Indication: SUICIDE ATTEMPT
     Dosage: UNK UNKNOWN
     Route: 065

REACTIONS (3)
  - Intentional overdose [Unknown]
  - Hypoglycaemic encephalopathy [Unknown]
  - Coma [Not Recovered/Not Resolved]
